FAERS Safety Report 7107598-3 (Version None)
Quarter: 2010Q4

REPORT INFORMATION
  Report Type: 
  Country: None (occurrence: None)
  Receive Date: 20101117
  Receipt Date: 20080528
  Transmission Date: 20110411
  Serious: No
  Sender: FDA-Public Use
  Company Number: US-KINGPHARMUSA00001-K200800621

PATIENT
  Age: 71 Year
  Sex: Female

DRUGS (7)
  1. ALTACE [Suspect]
     Dosage: 10 MG IN AM AND 10 MG AT NOON
     Route: 048
     Dates: start: 20050101
  2. ALTACE [Suspect]
     Dosage: 10 MG IN AM AND 20 MG AT NOON
     Dates: end: 20080201
  3. RAMIPRIL [Suspect]
     Dosage: 10 MG IN AM AND 20 MG AT NOON
     Route: 048
     Dates: start: 20080201
  4. HYDROCHLOROTHIAZIDE [Concomitant]
     Route: 048
     Dates: start: 20050101
  5. FLAXSEED OIL [Concomitant]
     Route: 048
  6. VITAMIN C                          /00008001/ [Concomitant]
     Route: 048
  7. GLUCOPHAGE [Concomitant]
     Route: 048
     Dates: start: 20071101

REACTIONS (3)
  - FLUSHING [None]
  - PARAESTHESIA [None]
  - POOR QUALITY SLEEP [None]
